FAERS Safety Report 16145209 (Version 1)
Quarter: 2019Q2

REPORT INFORMATION
  Report Type: Report from Study
  Country: ES (occurrence: ES)
  Receive Date: 20190402
  Receipt Date: 20190402
  Transmission Date: 20190711
  Serious: Yes (Hospitalization, Other)
  Sender: FDA-Public Use
  Company Number: ES-SA-2019SA082052

PATIENT
  Sex: Female
  Weight: 61 kg

DRUGS (4)
  1. FORTECORTIN [DEXAMETHASONE] [Concomitant]
     Active Substance: DEXAMETHASONE
     Indication: PANCREATIC NEOPLASM
  2. INSULIN GLARGINE [Suspect]
     Active Substance: INSULIN GLARGINE
     Indication: TYPE 2 DIABETES MELLITUS
     Dosage: 25 IU, QD
     Route: 058
  3. NOVORAPID [Concomitant]
     Active Substance: INSULIN ASPART
     Indication: TYPE 2 DIABETES MELLITUS
     Dosage: 9 IU
     Route: 058
     Dates: start: 20190318
  4. FORTECORTIN [DEXAMETHASONE] [Concomitant]
     Active Substance: DEXAMETHASONE
     Indication: HEPATIC NEOPLASM
     Dosage: UNK
     Route: 048

REACTIONS (8)
  - Fatigue [Not Recovered/Not Resolved]
  - Hyperhidrosis [Unknown]
  - Dry mouth [Not Recovered/Not Resolved]
  - Pyrexia [Recovered/Resolved]
  - Tremor [Unknown]
  - Hepatic neoplasm [Recovered/Resolved]
  - Somnolence [Not Recovered/Not Resolved]
  - Hyperglycaemia [Recovered/Resolved]
